FAERS Safety Report 10584827 (Version 1)
Quarter: 2014Q4

REPORT INFORMATION
  Report Type: Spontaneous
  Country: US (occurrence: US)
  Receive Date: 20141114
  Receipt Date: 20141114
  Transmission Date: 20150529
  Serious: No
  Sender: FDA-Public Use
  Company Number: US-ELI_LILLY_AND_COMPANY-US201410010901

PATIENT
  Sex: Female

DRUGS (2)
  1. FORTEO [Suspect]
     Active Substance: TERIPARATIDE
     Indication: OSTEOPOROSIS
     Route: 065
  2. FORTEO [Suspect]
     Active Substance: TERIPARATIDE
     Dosage: UNK
     Route: 065
     Dates: start: 20141014

REACTIONS (5)
  - Injection site haemorrhage [Unknown]
  - Bone density decreased [Unknown]
  - Gastrointestinal disorder [Unknown]
  - Neuropathy peripheral [Unknown]
  - Varicose vein [Unknown]
